FAERS Safety Report 14830753 (Version 3)
Quarter: 2018Q3

REPORT INFORMATION
  Report Type: Report from Study
  Country: US (occurrence: US)
  Receive Date: 20180430
  Receipt Date: 20180718
  Transmission Date: 20181010
  Serious: No
  Sender: FDA-Public Use
  Company Number: US-SA-2018SA101146

PATIENT
  Age: 55 Year
  Sex: Male

DRUGS (7)
  1. ZETIA [Concomitant]
     Active Substance: EZETIMIBE
  2. FISH OIL [Concomitant]
     Active Substance: FISH OIL
  3. PLENDIL [Concomitant]
     Active Substance: FELODIPINE
  4. ALIROCUMAB [Suspect]
     Active Substance: ALIROCUMAB
     Indication: BLOOD CHOLESTEROL
     Dosage: 75 MG, QOW
     Route: 058
     Dates: start: 20180315, end: 20180615
  5. ALTACE [Concomitant]
     Active Substance: RAMIPRIL
  6. PLAVIX [Concomitant]
     Active Substance: CLOPIDOGREL BISULFATE
  7. FLAXSEED OIL NATURE MADE [Concomitant]

REACTIONS (3)
  - Abdominal pain [Recovered/Resolved]
  - Chills [Unknown]
  - Abdominal pain [Not Recovered/Not Resolved]

NARRATIVE: CASE EVENT DATE: 20180401
